FAERS Safety Report 12808607 (Version 3)
Quarter: 2017Q4

REPORT INFORMATION
  Report Type: Report from Study
  Country: US (occurrence: US)
  Receive Date: 20161004
  Receipt Date: 20171218
  Transmission Date: 20180320
  Serious: Yes (Hospitalization, Other)
  Sender: FDA-Public Use
  Company Number: US-009507513-1609USA012734

PATIENT
  Sex: Female

DRUGS (1)
  1. JANUMET [Suspect]
     Active Substance: METFORMIN HYDROCHLORIDE\SITAGLIPTIN PHOSPHATE
     Dosage: UNK
     Route: 048
     Dates: start: 1992

REACTIONS (14)
  - Tremor [Unknown]
  - Weight decreased [Unknown]
  - Blood cholesterol abnormal [Not Recovered/Not Resolved]
  - Neuropathy peripheral [Not Recovered/Not Resolved]
  - Blood glucose increased [Unknown]
  - Pneumonia [Unknown]
  - Bronchitis [Unknown]
  - Multiple sclerosis [Not Recovered/Not Resolved]
  - Adverse event [Not Recovered/Not Resolved]
  - Drug dose omission [Unknown]
  - Blood pressure abnormal [Not Recovered/Not Resolved]
  - Hypoaesthesia [Unknown]
  - Visual impairment [Unknown]
  - Decreased appetite [Unknown]

NARRATIVE: CASE EVENT DATE: 2016
